FAERS Safety Report 12193114 (Version 1)
Quarter: 2016Q1

REPORT INFORMATION
  Report Type: Spontaneous
  Country: US (occurrence: US)
  Receive Date: 20160319
  Receipt Date: 20160319
  Transmission Date: 20160526
  Serious: No
  Sender: FDA-Public Use
  Company Number: US-SUN PHARMACEUTICAL INDUSTRIES LTD-2015US-98838

PATIENT
  Sex: Male

DRUGS (3)
  1. LEMEVIR [Concomitant]
     Indication: PRODUCT USED FOR UNKNOWN INDICATION
     Route: 065
  2. METFORMIN [Suspect]
     Active Substance: METFORMIN HYDROCHLORIDE
     Indication: DIABETES MELLITUS
     Dosage: 1 DF, BID
     Route: 048
     Dates: start: 201502
  3. PLAVIX [Concomitant]
     Active Substance: CLOPIDOGREL BISULFATE
     Indication: PRODUCT USED FOR UNKNOWN INDICATION
     Route: 065

REACTIONS (5)
  - Diarrhoea [Unknown]
  - Peripheral coldness [Unknown]
  - Medication residue present [Unknown]
  - Asthenia [Unknown]
  - Weight decreased [Unknown]
